FAERS Safety Report 11636351 (Version 2)
Quarter: 2015Q4

REPORT INFORMATION
  Report Type: Report from Study
  Country: VE (occurrence: VE)
  Receive Date: 20151016
  Receipt Date: 20151117
  Transmission Date: 20160304
  Serious: Yes (Hospitalization, Other)
  Sender: FDA-Public Use
  Company Number: VE-ABBVIE-14K-178-1321042-00

PATIENT
  Sex: Female
  Weight: 78 kg

DRUGS (1)
  1. HUMIRA [Suspect]
     Active Substance: ADALIMUMAB
     Indication: RHEUMATOID ARTHRITIS
     Route: 058
     Dates: start: 20111005, end: 20150823

REACTIONS (4)
  - Incisional hernia [Recovered/Resolved]
  - Appendicitis [Recovering/Resolving]
  - Suture rupture [Recovered/Resolved]
  - Colpocele [Recovering/Resolving]
